FAERS Safety Report 9732121 (Version 1)
Quarter: 2013Q4

REPORT INFORMATION
  Report Type: Spontaneous
  Country: JP (occurrence: JP)
  Receive Date: 20131205
  Receipt Date: 20131205
  Transmission Date: 20140711
  Serious: Yes (Other)
  Sender: FDA-Public Use
  Company Number: JP-ASTELLAS-2013JP013068

PATIENT
  Age: 64 Year
  Sex: Female

DRUGS (1)
  1. TACROLIMUS OINTMENT [Suspect]
     Indication: LICHEN PLANUS
     Route: 061

REACTIONS (2)
  - Drug ineffective for unapproved indication [Unknown]
  - Lichen planus [Unknown]
